FAERS Safety Report 10459851 (Version 3)
Quarter: 2014Q4

REPORT INFORMATION
  Report Type: Spontaneous
  Country: US (occurrence: US)
  Receive Date: 20140917
  Receipt Date: 20141013
  Transmission Date: 20150528
  Serious: No
  Sender: FDA-Public Use
  Company Number: US-ROXANE LABORATORIES, INC.-2014-RO-01382RO

PATIENT
  Age: 73 Year
  Sex: Female
  Weight: 72 kg

DRUGS (2)
  1. PREDNISONE. [Suspect]
     Active Substance: PREDNISONE
     Indication: MYALGIA
     Dosage: 50 MG
     Route: 048
     Dates: start: 20140908
  2. TRAMADOL [Concomitant]
     Active Substance: TRAMADOL
     Indication: PAIN
     Route: 065

REACTIONS (2)
  - Product quality issue [Not Recovered/Not Resolved]
  - Drug ineffective for unapproved indication [Recovered/Resolved]

NARRATIVE: CASE EVENT DATE: 20140908
